FAERS Safety Report 6081142-4 (Version None)
Quarter: 2009Q1

REPORT INFORMATION
  Report Type: 
  Country: None (occurrence: None)
  Receive Date: 20090213
  Receipt Date: 20090204
  Transmission Date: 20090719
  Serious: Yes (Hospitalization)
  Sender: FDA-Public Use
  Company Number: 200814660GPV

PATIENT
  Age: 65 Year
  Sex: Female

DRUGS (6)
  1. FLUDARABIN (FLUDARABINE) THE DRUG SAFETY UNIT'S IMPUTABILITY WAS: C1,S [Suspect]
     Indication: CHRONIC LYMPHOCYTIC LEUKAEMIA
     Dosage: ORAL, 65 MG ORAL
     Route: 048
     Dates: start: 20080118
  2. FLUDARABIN (FLUDARABINE) THE DRUG SAFETY UNIT'S IMPUTABILITY WAS: C1,S [Suspect]
     Indication: CHRONIC LYMPHOCYTIC LEUKAEMIA
     Dosage: ORAL, 65 MG ORAL
     Route: 048
     Dates: start: 20080216
  3. CYCLOPHOSPHAMIDE [Suspect]
     Indication: CHRONIC LYMPHOCYTIC LEUKAEMIA
     Dosage: ORAL, 340 MG ORAL
     Route: 048
     Dates: start: 20080118
  4. CYCLOPHOSPHAMIDE [Suspect]
     Indication: CHRONIC LYMPHOCYTIC LEUKAEMIA
     Dosage: ORAL, 340 MG ORAL
     Route: 048
     Dates: start: 20080216
  5. RITUXIMAB (RITUXIMAB) [Suspect]
     Indication: CHRONIC LYMPHOCYTIC LEUKAEMIA
     Dosage: INTRAVENOUS, 690 MG INTRAVENOUS
     Route: 042
     Dates: start: 20080117, end: 20080117
  6. RITUXIMAB (RITUXIMAB) [Suspect]
     Indication: CHRONIC LYMPHOCYTIC LEUKAEMIA
     Dosage: INTRAVENOUS, 690 MG INTRAVENOUS
     Route: 042
     Dates: start: 20080214, end: 20080214

REACTIONS (1)
  - PLEURAL EFFUSION [None]
